FAERS Safety Report 11728120 (Version 1)
Quarter: 2015Q4

REPORT INFORMATION
  Report Type: Spontaneous
  Country: DK (occurrence: DK)
  Receive Date: 20151112
  Receipt Date: 20151112
  Transmission Date: 20160304
  Serious: Yes (Hospitalization, Disabling)
  Sender: FDA-Public Use
  Company Number: DK-CELGENE-DNK-2015107895

PATIENT
  Age: 48 Year
  Sex: Male

DRUGS (1)
  1. THALIDOMIDE CELGENE [Suspect]
     Active Substance: THALIDOMIDE
     Indication: SMALL INTESTINAL HAEMORRHAGE
     Route: 048
     Dates: start: 20120705, end: 20120707

REACTIONS (6)
  - Coronary artery disease [Unknown]
  - Neuritis [Not Recovered/Not Resolved]
  - Hemiplegia [Not Recovered/Not Resolved]
  - Cerebral ischaemia [Unknown]
  - Speech disorder [Not Recovered/Not Resolved]
  - Lower limb fracture [Unknown]

NARRATIVE: CASE EVENT DATE: 2012
